FAERS Safety Report 7268847-4 (Version None)
Quarter: 2011Q1

REPORT INFORMATION
  Report Type: 
  Country: None (occurrence: None)
  Receive Date: 20110201
  Receipt Date: 20110121
  Transmission Date: 20110831
  Serious: Yes (Hospitalization)
  Sender: FDA-Public Use
  Company Number: US-JNJCH-2011002385

PATIENT
  Age: 41 Year
  Sex: Male
  Weight: 95.3 kg

DRUGS (1)
  1. LISTERINE ANTISEPTIC MOUTHWASH [Suspect]
     Indication: PRODUCT USED FOR UNKNOWN INDICATION
     Dosage: TEXT:THREE TIMES DAILY
     Route: 048
     Dates: start: 20110119, end: 20110119

REACTIONS (8)
  - MALAISE [None]
  - VOMITING [None]
  - NAUSEA [None]
  - EXPIRED DRUG ADMINISTERED [None]
  - PRODUCT QUALITY ISSUE [None]
  - ANXIETY [None]
  - ABDOMINAL DISCOMFORT [None]
  - OVERDOSE [None]
